FAERS Safety Report 4601292-6 (Version None)
Quarter: 2005Q1

REPORT INFORMATION
  Report Type: 
  Country: None (occurrence: None)
  Receive Date: 20050204
  Receipt Date: 20040629
  Transmission Date: 20050727
  Serious: Yes (Other)
  Sender: FDA-Public Use
  Company Number: US-SHR-03-012242

PATIENT
  Age: 41 Year
  Sex: Female

DRUGS (1)
  1. MIRENA [Suspect]
     Indication: MENORRHAGIA
     Dosage: 20 UG, CONT, INTRA-UTERINE
     Route: 015
     Dates: start: 20030514

REACTIONS (3)
  - ABDOMINAL DISTENSION [None]
  - IUCD COMPLICATION [None]
  - MENOMETRORRHAGIA [None]
